FAERS Safety Report 7216420-6 (Version None)
Quarter: 2011Q1

REPORT INFORMATION
  Report Type: 
  Country: None (occurrence: None)
  Receive Date: 20110107
  Receipt Date: 20110103
  Transmission Date: 20110831
  Serious: Yes (Hospitalization)
  Sender: FDA-Public Use
  Company Number: CZ-ABBOTT-09P-217-0572065-00

PATIENT
  Sex: Male
  Weight: 40.86 kg

DRUGS (2)
  1. HUMIRA [Suspect]
     Indication: CROHN'S DISEASE
     Route: 058
     Dates: start: 20090310, end: 20090505
  2. APO IBUPROFEN [Concomitant]
     Indication: ANKYLOSING SPONDYLITIS
     Dates: start: 20030101

REACTIONS (3)
  - C-REACTIVE PROTEIN INCREASED [None]
  - PYREXIA [None]
  - PERIRECTAL ABSCESS [None]
